FAERS Safety Report 5950200-4 (Version None)
Quarter: 2008Q4

REPORT INFORMATION
  Report Type: 
  Country: None (occurrence: None)
  Receive Date: 20081112
  Receipt Date: 20081030
  Transmission Date: 20090506
  Serious: Yes (Hospitalization, Other)
  Sender: FDA-Public Use
  Company Number: A0754268A

PATIENT
  Sex: Male
  Weight: 75 kg

DRUGS (1)
  1. ARIXTRA [Suspect]
     Indication: DEEP VEIN THROMBOSIS
     Dosage: 7.5MG PER DAY
     Route: 058

REACTIONS (2)
  - BACK PAIN [None]
  - INTRA-ABDOMINAL HAEMATOMA [None]
